FAERS Safety Report 19623466 (Version 1)
Quarter: 2021Q3

REPORT INFORMATION
  Report Type: Spontaneous
  Country: FR (occurrence: FR)
  Receive Date: 20210728
  Receipt Date: 20210728
  Transmission Date: 20211014
  Serious: Yes (Hospitalization)
  Sender: FDA-Public Use
  Company Number: FR-TEVA-2021-FR-1937118

PATIENT
  Age: 84 Year
  Sex: Male

DRUGS (2)
  1. ESOMEPRAZOLE. [Suspect]
     Active Substance: ESOMEPRAZOLE MAGNESIUM
     Indication: PROPHYLAXIS
     Dosage: THERAPY START DATE ASKU, 40MG
     Route: 048
     Dates: end: 20210615
  2. CORDARONE [Suspect]
     Active Substance: AMIODARONE HYDROCHLORIDE
     Indication: ATRIAL FIBRILLATION
     Dosage: 200 MG 5 DAYS A WEEK, SCORED
     Route: 048
     Dates: start: 20210101, end: 20210615

REACTIONS (2)
  - Diarrhoea [Recovered/Resolved]
  - Hypothyroidism [Recovered/Resolved]

NARRATIVE: CASE EVENT DATE: 20210615
